FAERS Safety Report 21790560 (Version 1)
Quarter: 2022Q4

REPORT INFORMATION
  Report Type: Spontaneous
  Country: US (occurrence: None)
  Receive Date: 20221227
  Receipt Date: 20221227
  Transmission Date: 20230112
  Serious: Yes (Hospitalization)
  Sender: FDA-Public Use
  Company Number: None

PATIENT
  Age: 62 Year
  Sex: Male
  Weight: 144.7 kg

DRUGS (9)
  1. BRAFTOVI [Suspect]
     Active Substance: ENCORAFENIB
     Indication: Metastatic neoplasm
     Dosage: FREQUENCY : DAILY;?
     Route: 048
  2. AMLODIPINE BESYLATE [Concomitant]
  3. CALCIUM 500 D3 [Concomitant]
  4. DIVALPROEX [Concomitant]
  5. LISINOPRIL [Concomitant]
  6. LOVASTATIN [Concomitant]
  7. METOPROLOL SUCCINATE ER [Concomitant]
  8. TRAZODONE HCI [Concomitant]
  9. VITAMIN D-3 [Concomitant]

REACTIONS (1)
  - Pleural effusion [None]
